FAERS Safety Report 7889549-7 (Version None)
Quarter: 2011Q4

REPORT INFORMATION
  Report Type: 
  Country: None (occurrence: None)
  Receive Date: 20111103
  Receipt Date: 20101124
  Transmission Date: 20120403
  Serious: Yes (Other)
  Sender: FDA-Public Use
  Company Number: US-BRISTOL-MYERS SQUIBB COMPANY-15405657

PATIENT
  Age: 55 Year
  Sex: Female

DRUGS (4)
  1. DEXAMETHASONE [Suspect]
     Dosage: RESTARTED ON 16NOV2010,INJ
  2. IBUPROFEN [Concomitant]
  3. KENALOG-40 [Suspect]
     Dosage: RESTARTED ON 16NOV2010
  4. IMITREX [Concomitant]

REACTIONS (7)
  - PANCREATITIS [None]
  - TREMOR [None]
  - DYSPNOEA [None]
  - HEART RATE INCREASED [None]
  - BLOOD GLUCOSE INCREASED [None]
  - HYPOAESTHESIA [None]
  - PARAESTHESIA [None]
